FAERS Safety Report 22036802 (Version 2)
Quarter: 2023Q1

REPORT INFORMATION
  Report Type: Report from Study
  Country: US (occurrence: US)
  Receive Date: 20230225
  Receipt Date: 20230321
  Transmission Date: 20230418
  Serious: Yes (Hospitalization, Other)
  Sender: FDA-Public Use
  Company Number: US-UCBSA-2023009146

PATIENT
  Age: 3 Year
  Sex: Male

DRUGS (3)
  1. FINTEPLA [Suspect]
     Active Substance: FENFLURAMINE
     Indication: Severe myoclonic epilepsy of infancy
     Dosage: 2 ML EVERY MORNING AND 2.5 ML EVERY NIGHT
  2. FINTEPLA [Suspect]
     Active Substance: FENFLURAMINE
     Dosage: 2ML QAM AND 2.5 ML  QPM
  3. KEPPRA [Suspect]
     Active Substance: LEVETIRACETAM
     Indication: Product used for unknown indication
     Dosage: UNK

REACTIONS (2)
  - Seizure [Not Recovered/Not Resolved]
  - Endotracheal intubation [Unknown]

NARRATIVE: CASE EVENT DATE: 20230128
